FAERS Safety Report 13182074 (Version 1)
Quarter: 2017Q1

REPORT INFORMATION
  Report Type: Spontaneous
  Country: US (occurrence: US)
  Receive Date: 20170202
  Receipt Date: 20170202
  Transmission Date: 20170428
  Serious: No
  Sender: FDA-Public Use
  Company Number: None

PATIENT
  Age: 29 Year
  Sex: Male
  Weight: 90 kg

DRUGS (3)
  1. NEXIUM [Concomitant]
     Active Substance: ESOMEPRAZOLE MAGNESIUM
  2. CLOMID [Concomitant]
     Active Substance: CLOMIPHENE CITRATE
  3. ACID REDUCER (RANITIDINE HYDROCHLORIDE) [Suspect]
     Active Substance: RANITIDINE HYDROCHLORIDE
     Indication: GASTROOESOPHAGEAL REFLUX DISEASE
     Dosage: ?          QUANTITY:65 TABLET(S);?
     Route: 048
     Dates: start: 20150801, end: 20170114

REACTIONS (3)
  - Drug ineffective [None]
  - Sexual dysfunction [None]
  - Erectile dysfunction [None]

NARRATIVE: CASE EVENT DATE: 20150801
